FAERS Safety Report 21220423 (Version 1)
Quarter: 2022Q3

REPORT INFORMATION
  Report Type: Spontaneous
  Country: FR (occurrence: FR)
  Receive Date: 20220817
  Receipt Date: 20220817
  Transmission Date: 20221027
  Serious: Yes (Death, Other)
  Sender: FDA-Public Use
  Company Number: None

PATIENT

DRUGS (4)
  1. DARUNAVIR [Suspect]
     Active Substance: DARUNAVIR
     Indication: HIV infection
     Dosage: 1200 MILLIGRAM DAILY; 600 MILLIGRAM, TWICE DAILY, UNIT DOSE: 1200 MG, FREQUENCY TIME-1 DAY
  2. ETRAVIRINE [Suspect]
     Active Substance: ETRAVIRINE
     Indication: HIV infection
     Dosage: 400 MILLIGRAM DAILY; 200 MILLIGRAM, TWICE DAILY, UNIT DOSE: 400 MG, FREQUENCY TIME-1 DAY,
  3. RALTEGRAVIR POTASSIUM [Suspect]
     Active Substance: RALTEGRAVIR POTASSIUM
     Indication: HIV infection
     Dosage: 800 MILLIGRAM DAILY; 400 MILLIGRAM, TWICE A DAY, UNIT DOSE: 800 MG, FREQUENCY TIME-1 DAY,
  4. RITONAVIR [Suspect]
     Active Substance: RITONAVIR
     Indication: Product used for unknown indication
     Dosage: 200 MILLIGRAM DAILY; 100 MILLIGRAM, TWICE A DAY, UNIT DOSE: 200 MG, FREQUENCY TIME-1 DAY,

REACTIONS (5)
  - Death [Fatal]
  - Treatment failure [Unknown]
  - Drug resistance [Unknown]
  - CD4/CD8 ratio decreased [Unknown]
  - CD4 lymphocytes decreased [Unknown]
